FAERS Safety Report 14630780 (Version 1)
Quarter: 2018Q1

REPORT INFORMATION
  Report Type: Spontaneous
  Country: CO (occurrence: RO)
  Receive Date: 20180313
  Receipt Date: 20180313
  Transmission Date: 20180509
  Serious: Yes (Congenital Anomaly, Other)
  Sender: FDA-Public Use
  Company Number: CO-PFIZER INC-2018103684

PATIENT
  Sex: Male

DRUGS (2)
  1. DICLOFENAC SODIUM/MISOPROSTOL [Suspect]
     Active Substance: DICLOFENAC SODIUM\MISOPROSTOL
     Dosage: 400 MG, UNK
     Route: 064
  2. DICLOFENAC SODIUM/MISOPROSTOL [Suspect]
     Active Substance: DICLOFENAC SODIUM\MISOPROSTOL
     Indication: ABORTION
     Dosage: 400 MG, UNK
     Route: 064

REACTIONS (4)
  - Maternal drugs affecting foetus [None]
  - Exposure during pregnancy [Not Recovered/Not Resolved]
  - Moebius II syndrome [Unknown]
  - Poland^s syndrome [Unknown]
